FAERS Safety Report 10177359 (Version 2)
Quarter: 2014Q2

REPORT INFORMATION
  Report Type: Spontaneous
  Country: JP (occurrence: JP)
  Receive Date: 20140516
  Receipt Date: 20140516
  Transmission Date: 20141212
  Serious: Yes (Death, Other)
  Sender: FDA-Public Use
  Company Number: JP-BAYER-2013-136483

PATIENT
  Age: 65 Year
  Sex: Male
  Weight: 57 kg

DRUGS (9)
  1. STIVARGA [Suspect]
     Indication: RECTAL CANCER
     Dosage: 160 MG, QD
     Route: 048
     Dates: start: 20131022, end: 20131025
  2. STIVARGA [Suspect]
     Indication: RECTAL CANCER
     Dosage: 80 MG, QD
     Route: 048
     Dates: start: 20131106, end: 20131111
  3. STIVARGA [Suspect]
     Indication: RECTAL CANCER
     Dosage: 80 MG, QD
     Route: 048
     Dates: start: 20131119, end: 20131204
  4. STIVARGA [Suspect]
     Indication: RECTAL CANCER
     Dosage: 80 MG, QD
     Route: 048
     Dates: start: 20140110, end: 20140114
  5. FUROSEMIDE [Concomitant]
     Dosage: DAILY DOSE 20 MG
     Route: 048
     Dates: start: 20131024, end: 20131030
  6. SPIRONOLACTONE [Concomitant]
     Dosage: DAILY DOSE 25 MG
     Route: 048
     Dates: start: 20131024, end: 20131030
  7. MAGMITT [Concomitant]
     Dosage: DAILY DOSE 1000 MG
     Route: 048
     Dates: start: 20131130, end: 20131220
  8. MIYA BM [Concomitant]
     Dosage: DAILY DOSE 3 G
     Route: 048
     Dates: start: 20131130, end: 20131206
  9. BESOFTEN [Concomitant]
     Indication: DRUG TOXICITY PROPHYLAXIS
     Dosage: UNK
     Route: 061
     Dates: start: 20131019

REACTIONS (6)
  - Rectal cancer [Fatal]
  - Gastrointestinal haemorrhage [Recovered/Resolved]
  - Palmar-plantar erythrodysaesthesia syndrome [Recovered/Resolved]
  - Palmar-plantar erythrodysaesthesia syndrome [Recovering/Resolving]
  - Pyrexia [Recovered/Resolved]
  - Hepatic function abnormal [Recovered/Resolved]
